FAERS Safety Report 9364053 (Version 1)
Quarter: 2013Q2

REPORT INFORMATION
  Report Type: Spontaneous
  Country: FR (occurrence: None)
  Receive Date: 20130620
  Receipt Date: 20130620
  Transmission Date: 20140414
  Serious: Yes (Hospitalization)
  Sender: FDA-Public Use
  Company Number: FR-20130257

PATIENT
  Sex: Female

DRUGS (1)
  1. DOTAREM [Suspect]
     Indication: NUCLEAR MAGNETIC RESONANCE IMAGING
     Dosage: (1 IN 1 TOAL), UNKNOWN
     Dates: start: 201305, end: 201305

REACTIONS (4)
  - Angioedema [None]
  - Hypotension [None]
  - Papule [None]
  - Burning sensation [None]
